FAERS Safety Report 24917813 (Version 1)
Quarter: 2025Q1

REPORT INFORMATION
  Report Type: Report from Study
  Country: CA (occurrence: CA)
  Receive Date: 20250203
  Receipt Date: 20250203
  Transmission Date: 20250408
  Serious: Yes (Other)
  Sender: ALEXION PHARMACEUTICALS
  Company Number: CA-AstraZeneca-CH-00786956A

PATIENT
  Age: 69 Year
  Weight: 67 kg

DRUGS (10)
  1. LYNPARZA [Suspect]
     Active Substance: OLAPARIB
     Indication: Hormone receptor positive breast cancer
     Dosage: 300 MILLIGRAM, BID
  2. LYNPARZA [Suspect]
     Active Substance: OLAPARIB
     Dosage: 250 MILLIGRAM, BID
  3. LYNPARZA [Suspect]
     Active Substance: OLAPARIB
     Dosage: 200 MILLIGRAM, BID
  4. LYNPARZA [Suspect]
     Active Substance: OLAPARIB
     Dosage: 150 MILLIGRAM, BID
  5. VITAMIN D3 [Concomitant]
     Active Substance: CHOLECALCIFEROL
     Route: 065
  6. JWH-018 [Concomitant]
     Active Substance: JWH-018
     Route: 065
  7. ZINC [Concomitant]
     Active Substance: ZINC
     Route: 065
  8. PANTOPRAZOLE [Concomitant]
     Active Substance: PANTOPRAZOLE
     Route: 065
  9. DILAUDID [Concomitant]
     Active Substance: HYDROMORPHONE HYDROCHLORIDE
     Route: 065
  10. CANNABIS SATIVA SUBSP. INDICA TOP [Concomitant]
     Active Substance: CANNABIS SATIVA SUBSP. INDICA TOP
     Route: 065

REACTIONS (19)
  - Suicidal ideation [Unknown]
  - Feeling abnormal [Unknown]
  - Nausea [Unknown]
  - Hyperchlorhydria [Unknown]
  - Asthenia [Unknown]
  - Insomnia [Unknown]
  - Brain fog [Unknown]
  - Chronic kidney disease [Unknown]
  - Malignant peritoneal neoplasm [Unknown]
  - Fatigue [Unknown]
  - Depression [Unknown]
  - Anxiety [Unknown]
  - Pain [Unknown]
  - Early satiety [Unknown]
  - Constipation [Unknown]
  - Diarrhoea [Unknown]
  - Abnormal faeces [Unknown]
  - Nodule [Unknown]
  - Carcinoembryonic antigen increased [Unknown]
